FAERS Safety Report 12591258 (Version 1)
Quarter: 2016Q3

REPORT INFORMATION
  Report Type: Spontaneous
  Country: US (occurrence: None)
  Receive Date: 20160725
  Receipt Date: 20160725
  Transmission Date: 20161109
  Serious: Yes (Other)
  Sender: FDA-Public Use
  Company Number: None

PATIENT
  Age: 56 Year
  Sex: Female
  Weight: 122 kg

DRUGS (1)
  1. XARELTO [Suspect]
     Active Substance: RIVAROXABAN
     Indication: ATRIAL FIBRILLATION
     Route: 048
     Dates: start: 20150403, end: 20151204

REACTIONS (7)
  - Chest pain [None]
  - Headache [None]
  - Fatigue [None]
  - Dyspnoea [None]
  - Appetite disorder [None]
  - Abdominal distension [None]
  - Fluid retention [None]

NARRATIVE: CASE EVENT DATE: 20150904
